FAERS Safety Report 21070685 (Version 1)
Quarter: 2022Q3

REPORT INFORMATION
  Report Type: Report from Study
  Country: CN (occurrence: CN)
  Receive Date: 20220712
  Receipt Date: 20220712
  Transmission Date: 20221027
  Serious: Yes (Other)
  Sender: FDA-Public Use
  Company Number: CN-PFIZER INC-PV202200014358

PATIENT

DRUGS (3)
  1. METHYLPREDNISOLONE SODIUM SUCCINATE [Suspect]
     Active Substance: METHYLPREDNISOLONE SODIUM SUCCINATE
     Indication: Bronchiectasis
     Dosage: 40 MG, 2X/DAY
     Route: 041
  2. METHYLPREDNISOLONE SODIUM SUCCINATE [Suspect]
     Active Substance: METHYLPREDNISOLONE SODIUM SUCCINATE
     Indication: Asthma
  3. DEXTROSE [Concomitant]
     Active Substance: DEXTROSE
     Dosage: 100 ML, 2X/DAY
     Route: 041

REACTIONS (1)
  - Melaena [Recovered/Resolved]
